FAERS Safety Report 18693810 (Version 2)
Quarter: 2024Q1

REPORT INFORMATION
  Report Type: Report from Study
  Country: US (occurrence: US)
  Receive Date: 20210104
  Receipt Date: 20240311
  Transmission Date: 20240410
  Serious: Yes (Hospitalization)
  Sender: FDA-Public Use
  Company Number: US-TAKEDA-2020TUS061246

PATIENT
  Age: 27 Year
  Sex: Female

DRUGS (2)
  1. VELAGLUCERASE ALFA [Suspect]
     Active Substance: VELAGLUCERASE ALFA
     Indication: Gaucher^s disease
     Dosage: 6400 INTERNATIONAL UNIT, Q2WEEKS
     Route: 042
     Dates: start: 201801
  2. VELAGLUCERASE ALFA [Suspect]
     Active Substance: VELAGLUCERASE ALFA
     Dosage: 8400 INTERNATIONAL UNIT, Q2WEEKS
     Route: 042

REACTIONS (3)
  - Headache [Unknown]
  - Blood pressure increased [Unknown]
  - Pregnancy [Unknown]

NARRATIVE: CASE EVENT DATE: 20201222
